FAERS Safety Report 23315653 (Version 4)
Quarter: 2024Q1

REPORT INFORMATION
  Report Type: Spontaneous
  Country: JP (occurrence: JP)
  Receive Date: 20231219
  Receipt Date: 20240214
  Transmission Date: 20240409
  Serious: Yes (Hospitalization, Other)
  Sender: FDA-Public Use
  Company Number: JP-NOVOPROD-1150115

PATIENT
  Age: 82 Year
  Sex: Female
  Weight: 62.6 kg

DRUGS (6)
  1. FIASP [Suspect]
     Active Substance: INSULIN ASPART
     Dosage: 11 IU, QD
     Route: 058
     Dates: end: 20230326
  2. PRAVASTATIN SODIUM [Concomitant]
     Active Substance: PRAVASTATIN SODIUM
     Indication: Product used for unknown indication
     Dosage: 5 MG, QD
     Route: 048
  3. VALSARTAN [Concomitant]
     Active Substance: VALSARTAN
     Indication: Product used for unknown indication
     Dosage: 4 MG, QD
     Route: 048
  4. AZELNIDIPINE [Concomitant]
     Active Substance: AZELNIDIPINE
     Indication: Product used for unknown indication
     Dosage: 16 MG, QD
     Route: 048
  5. ASPIRIN [Concomitant]
     Active Substance: ASPIRIN
     Indication: Product used for unknown indication
     Dosage: 100 MG, QD
     Route: 048
  6. TRESIBA [Suspect]
     Active Substance: INSULIN DEGLUDEC
     Indication: Type 1 diabetes mellitus
     Dosage: 3 IU, QD
     Route: 058
     Dates: end: 20230326

REACTIONS (8)
  - Emphysematous cholecystitis [Recovered/Resolved]
  - Renal tubular necrosis [Recovering/Resolving]
  - Pneumonia [Unknown]
  - Immobilisation syndrome [Unknown]
  - Diabetic ketoacidosis [Recovered/Resolved]
  - Altered state of consciousness [Unknown]
  - Product dose omission issue [Unknown]
  - Urinary tract infection [Unknown]

NARRATIVE: CASE EVENT DATE: 20230301
